FAERS Safety Report 15700366 (Version 3)
Quarter: 2020Q2

REPORT INFORMATION
  Report Type: Spontaneous
  Country: US (occurrence: US)
  Receive Date: 20181207
  Receipt Date: 20200519
  Transmission Date: 20200713
  Serious: Yes (Other)
  Sender: FDA-Public Use
  Company Number: US-ASTRAZENECA-2018SF58540

PATIENT
  Age: 843 Month
  Sex: Female
  Weight: 68 kg

DRUGS (33)
  1. TAXOL [Concomitant]
     Active Substance: PACLITAXEL
     Dates: start: 201603
  2. ZOCOR [Concomitant]
     Active Substance: SIMVASTATIN
     Dates: start: 20170309
  3. PROTONIX [Suspect]
     Active Substance: PANTOPRAZOLE SODIUM
     Indication: GASTROOESOPHAGEAL REFLUX DISEASE
     Route: 065
     Dates: start: 2005, end: 2015
  4. EVISTA [Concomitant]
     Active Substance: RALOXIFENE HYDROCHLORIDE
     Dates: start: 20170309
  5. RAMUCIRUMAB [Concomitant]
     Active Substance: RAMUCIRUMAB
     Dates: start: 201603
  6. AMIODARONE [Concomitant]
     Active Substance: AMIODARONE
     Dates: start: 20160315
  7. XANAX [Concomitant]
     Active Substance: ALPRAZOLAM
     Dates: start: 20170309
  8. CEPHALEXIN. [Concomitant]
     Active Substance: CEPHALEXIN
     Dates: start: 20170309
  9. CYANOCOBALAMIN. [Concomitant]
     Active Substance: CYANOCOBALAMIN
     Dates: start: 20150625
  10. DILTIAZEM. [Concomitant]
     Active Substance: DILTIAZEM
     Dates: start: 20150625
  11. SYNTHROID [Concomitant]
     Active Substance: LEVOTHYROXINE SODIUM
     Dates: start: 20170309
  12. BIAXIN [Concomitant]
     Active Substance: CLARITHROMYCIN
     Dates: start: 20170309
  13. NEURONTIN [Concomitant]
     Active Substance: GABAPENTIN
     Dates: start: 20170309
  14. NEXIUM 24HR [Suspect]
     Active Substance: ESOMEPRAZOLE MAGNESIUM
     Route: 048
  15. LASIX [Concomitant]
     Active Substance: FUROSEMIDE
     Dates: start: 20160513
  16. METOPROLOL SUCCINATE. [Concomitant]
     Active Substance: METOPROLOL SUCCINATE
     Dates: start: 20150625
  17. PROMETHAZINE [Concomitant]
     Active Substance: PROMETHAZINE HYDROCHLORIDE
     Dates: start: 20160322
  18. PRILOSEC [Suspect]
     Active Substance: OMEPRAZOLE MAGNESIUM
     Indication: GASTROOESOPHAGEAL REFLUX DISEASE
     Route: 048
     Dates: start: 2005, end: 2015
  19. PROTONIX [Suspect]
     Active Substance: PANTOPRAZOLE SODIUM
     Indication: GASTROOESOPHAGEAL REFLUX DISEASE
     Dosage: GENERIC
     Route: 065
     Dates: start: 2014, end: 2015
  20. LEVOTHYROXINE. [Concomitant]
     Active Substance: LEVOTHYROXINE
     Dates: start: 20150625
  21. LOSARTAN. [Concomitant]
     Active Substance: LOSARTAN
     Dates: start: 20150625
  22. MIRAPEX [Concomitant]
     Active Substance: PRAMIPEXOLE DIHYDROCHLORIDE
     Dates: start: 20150625
  23. METHYLPREDNISOLONE. [Concomitant]
     Active Substance: METHYLPREDNISOLONE
     Dates: start: 20170309
  24. BEXTRA [Concomitant]
     Active Substance: VALDECOXIB
     Dates: start: 20170309
  25. PRADAXA [Concomitant]
     Active Substance: DABIGATRAN ETEXILATE MESYLATE
     Dates: start: 20170309
  26. WARFARIN [Concomitant]
     Active Substance: WARFARIN
     Dates: start: 20170309
  27. MECLIZINE [Concomitant]
     Active Substance: MECLIZINE HYDROCHLORIDE
     Dates: start: 20170309
  28. AMOXICILLIN. [Concomitant]
     Active Substance: AMOXICILLIN
     Dates: start: 20170309
  29. PRILOSEC [Suspect]
     Active Substance: OMEPRAZOLE MAGNESIUM
     Indication: GASTROOESOPHAGEAL REFLUX DISEASE
     Dosage: GENERIC
     Route: 065
     Dates: start: 2010, end: 2014
  30. ZOLOFT [Concomitant]
     Active Substance: SERTRALINE HYDROCHLORIDE
     Dates: start: 20170309
  31. NEXIUM [Suspect]
     Active Substance: ESOMEPRAZOLE MAGNESIUM
     Indication: GASTROOESOPHAGEAL REFLUX DISEASE
     Route: 048
     Dates: start: 2005, end: 2015
  32. NEXIUM [Suspect]
     Active Substance: ESOMEPRAZOLE MAGNESIUM
     Indication: GASTROOESOPHAGEAL REFLUX DISEASE
     Route: 048
     Dates: start: 2005, end: 2010
  33. LANSOPRAZOLE. [Suspect]
     Active Substance: LANSOPRAZOLE
     Indication: GASTROOESOPHAGEAL REFLUX DISEASE
     Route: 065
     Dates: start: 2014, end: 2015

REACTIONS (4)
  - Adenocarcinoma gastric [Not Recovered/Not Resolved]
  - Hepatic cancer metastatic [Unknown]
  - Oesophageal adenocarcinoma [Unknown]
  - Lung cancer metastatic [Unknown]

NARRATIVE: CASE EVENT DATE: 201401
